FAERS Safety Report 18208823 (Version 1)
Quarter: 2020Q3

REPORT INFORMATION
  Report Type: Spontaneous
  Country: US (occurrence: US)
  Receive Date: 20200828
  Receipt Date: 20200828
  Transmission Date: 20201103
  Serious: No
  Sender: FDA-Public Use
  Company Number: US-MYLANLABS-2020M1072384

PATIENT
  Sex: Female
  Weight: 41 kg

DRUGS (1)
  1. ESTRADIOL VAGINAL CREAM USP [Suspect]
     Active Substance: ESTRADIOL
     Indication: HORMONE REPLACEMENT THERAPY
     Dosage: 3 GRAM, QW
     Route: 062

REACTIONS (3)
  - Product packaging quantity issue [Unknown]
  - General physical health deterioration [Not Recovered/Not Resolved]
  - Product container issue [Not Recovered/Not Resolved]
